FAERS Safety Report 5704411-3 (Version None)
Quarter: 2008Q2

REPORT INFORMATION
  Report Type: 
  Country: None (occurrence: None)
  Receive Date: 20080411
  Receipt Date: 20080411
  Transmission Date: 20081010
  Serious: Yes (Hospitalization)
  Sender: FDA-Public Use
  Company Number: None

PATIENT
  Sex: Male
  Weight: 64.5 kg

DRUGS (2)
  1. DACARBAZINE [Suspect]
     Indication: MALIGNANT MELANOMA
     Dosage: 1600MG, IV Q21DAYS
     Route: 042
     Dates: start: 20080305, end: 20080403
  2. DASATINIB [Suspect]
     Indication: MALIGNANT MELANOMA
     Dosage: 70MG ORALLY BID
     Route: 048
     Dates: start: 20080306

REACTIONS (5)
  - ANAPHYLACTIC REACTION [None]
  - DYSPNOEA [None]
  - ERYTHEMA [None]
  - PLEURAL EFFUSION [None]
  - SKIN LESION [None]
